APPROVED DRUG PRODUCT: FLUOCINONIDE
Active Ingredient: FLUOCINONIDE
Strength: 0.05%
Dosage Form/Route: GEL;TOPICAL
Application: A209030 | Product #001 | TE Code: AB
Applicant: PADAGIS US LLC
Approved: Jun 19, 2018 | RLD: No | RS: No | Type: RX